FAERS Safety Report 21872032 (Version 9)
Quarter: 2023Q2

REPORT INFORMATION
  Report Type: Spontaneous
  Country: US (occurrence: US)
  Receive Date: 20230117
  Receipt Date: 20230526
  Transmission Date: 20230722
  Serious: No
  Sender: FDA-Public Use
  Company Number: US-PFIZER INC-PV202300006231

PATIENT
  Age: 64 Year
  Sex: Female

DRUGS (3)
  1. IBRANCE [Suspect]
     Active Substance: PALBOCICLIB
     Dosage: 100 MG
  2. IBRANCE [Suspect]
     Active Substance: PALBOCICLIB
     Dosage: 75 MG, CYCLIC (2 WEEKS ON AND 2 WEEKS OFF)
  3. LETROZOLE [Concomitant]
     Active Substance: LETROZOLE
     Dosage: UNK

REACTIONS (10)
  - Fatigue [Unknown]
  - Oral pain [Unknown]
  - White blood cell count decreased [Unknown]
  - Malaise [Unknown]
  - Stomatitis [Recovering/Resolving]
  - Pain in extremity [Unknown]
  - Headache [Not Recovered/Not Resolved]
  - Toothache [Not Recovered/Not Resolved]
  - Peripheral swelling [Not Recovered/Not Resolved]
  - Off label use [Unknown]
